FAERS Safety Report 5188200-7 (Version None)
Quarter: 2006Q4

REPORT INFORMATION
  Report Type: 
  Country: None (occurrence: None)
  Receive Date: 20061221
  Receipt Date: 20061011
  Transmission Date: 20070319
  Serious: Yes (Life-Threatening, Hospitalization)
  Sender: FDA-Public Use
  Company Number: DE-ROCHE-466839

PATIENT
  Age: 63 Year
  Sex: Female

DRUGS (3)
  1. DACLIZUMAB [Suspect]
     Route: 042
     Dates: start: 20060825, end: 20060825
  2. DACLIZUMAB [Suspect]
     Route: 042
     Dates: start: 20060901, end: 20060901
  3. TACROLIMUS [Suspect]
     Route: 048
     Dates: start: 20060826, end: 20060922

REACTIONS (5)
  - BILE DUCT NECROSIS [None]
  - BRADYCARDIA [None]
  - CARDIAC ARREST [None]
  - DUODENAL PERFORATION [None]
  - PERITONITIS [None]
